FAERS Safety Report 7867427-7 (Version None)
Quarter: 2011Q4

REPORT INFORMATION
  Report Type: 
  Country: None (occurrence: None)
  Receive Date: 20111028
  Receipt Date: 20111017
  Transmission Date: 20120403
  Serious: Yes (Other)
  Sender: FDA-Public Use
  Company Number: JP-MERCK-1110USA03085

PATIENT
  Age: 50 Year

DRUGS (2)
  1. METFORMIN HCL [Concomitant]
     Route: 048
     Dates: start: 20090101
  2. JANUVIA [Suspect]
     Indication: DIABETES MELLITUS
     Route: 048
     Dates: start: 20090101, end: 20111017

REACTIONS (1)
  - AMNESIA [None]
